FAERS Safety Report 13981100 (Version 1)
Quarter: 2017Q3

REPORT INFORMATION
  Report Type: Spontaneous
  Country: US (occurrence: US)
  Receive Date: 20170918
  Receipt Date: 20170918
  Transmission Date: 20171128
  Serious: No
  Sender: FDA-Public Use
  Company Number: US-TEVA-749753USA

PATIENT
  Sex: Female

DRUGS (3)
  1. BUPROPION. [Suspect]
     Active Substance: BUPROPION
     Dates: start: 20170101
  2. BUPROPION. [Suspect]
     Active Substance: BUPROPION
     Indication: APATHY
     Dates: start: 20170218
  3. BUPROPION. [Suspect]
     Active Substance: BUPROPION
     Dosage: 600 MILLIGRAM DAILY;
     Route: 065

REACTIONS (7)
  - Bradyphrenia [Unknown]
  - Somnolence [Unknown]
  - Therapy change [Unknown]
  - Headache [Unknown]
  - Hangover [Unknown]
  - Cognitive disorder [Unknown]
  - Insomnia [Unknown]

NARRATIVE: CASE EVENT DATE: 20170218
